FAERS Safety Report 23772193 (Version 1)
Quarter: 2024Q2

REPORT INFORMATION
  Report Type: Report from Study
  Country: US (occurrence: US)
  Receive Date: 20240423
  Receipt Date: 20240423
  Transmission Date: 20240715
  Serious: Yes (Other)
  Sender: FDA-Public Use
  Company Number: US-ABBVIE-5616345

PATIENT
  Sex: Male

DRUGS (2)
  1. SKYRIZI [Suspect]
     Active Substance: RISANKIZUMAB-RZAA
     Indication: Crohn^s disease
     Dosage: DRUG END DATE -2022
     Route: 058
     Dates: start: 20221018
  2. SKYRIZI [Suspect]
     Active Substance: RISANKIZUMAB-RZAA
     Route: 058
     Dates: start: 20221115

REACTIONS (4)
  - Surgery [Not Recovered/Not Resolved]
  - Abdominal pain [Recovering/Resolving]
  - Diarrhoea [Recovering/Resolving]
  - Acne [Not Recovered/Not Resolved]

NARRATIVE: CASE EVENT DATE: 20230101
